FAERS Safety Report 5992093-5 (Version None)
Quarter: 2008Q4

REPORT INFORMATION
  Report Type: 
  Country: None (occurrence: None)
  Receive Date: 20081211
  Receipt Date: 20080522
  Transmission Date: 20090506
  Serious: No
  Sender: FDA-Public Use
  Company Number: US-AMGEN-KDL280115

PATIENT
  Sex: Female

DRUGS (6)
  1. ENBREL [Suspect]
     Indication: DRUG USE FOR UNKNOWN INDICATION
     Route: 058
     Dates: start: 20071121
  2. SYNTHROID [Concomitant]
  3. LEXAPRO [Concomitant]
  4. ZETIA [Concomitant]
  5. ALLEGRA [Concomitant]
  6. TAGAMET [Concomitant]

REACTIONS (5)
  - CARPAL TUNNEL SYNDROME [None]
  - DIZZINESS [None]
  - FEELING ABNORMAL [None]
  - INTERVERTEBRAL DISC PROTRUSION [None]
  - MUSCLE SPASMS [None]
